FAERS Safety Report 5478374-2 (Version None)
Quarter: 2007Q4

REPORT INFORMATION
  Report Type: 
  Country: None (occurrence: None)
  Receive Date: 20071005
  Receipt Date: 20071001
  Transmission Date: 20080405
  Serious: Yes (Other)
  Sender: FDA-Public Use
  Company Number: B0486230A

PATIENT
  Age: 29 Year
  Sex: Male

DRUGS (4)
  1. CETIRIZINE HCL [Suspect]
  2. COZAAR [Suspect]
  3. UNKNOWN NAME [Suspect]
     Dosage: 1MG TWICE PER DAY
     Route: 048
  4. SALBUTAMOL [Suspect]

REACTIONS (1)
  - CONVULSION [None]
